FAERS Safety Report 6480394-6 (Version None)
Quarter: 2009Q4

REPORT INFORMATION
  Report Type: 
  Country: None (occurrence: None)
  Receive Date: 20091208
  Receipt Date: 20091201
  Transmission Date: 20100525
  Serious: Yes (Other)
  Sender: FDA-Public Use
  Company Number: IT-JNJFOC-20091200534

PATIENT
  Sex: Female

DRUGS (2)
  1. SERENASE [Suspect]
     Indication: PERSONALITY DISORDER
     Route: 048
  2. SEREUPIN [Suspect]
     Indication: DEPRESSION
     Route: 048

REACTIONS (2)
  - BLOOD PRESSURE INCREASED [None]
  - PALPITATIONS [None]
